FAERS Safety Report 24743051 (Version 5)
Quarter: 2025Q3

REPORT INFORMATION
  Report Type: Report from Study
  Country: CA (occurrence: CA)
  Receive Date: 20241217
  Receipt Date: 20250805
  Transmission Date: 20251020
  Serious: Yes (Other)
  Sender: TAKEDA
  Company Number: CA-TAKEDA-2024TUS125203

PATIENT
  Age: 43 Year
  Sex: Female

DRUGS (7)
  1. VEDOLIZUMAB [Suspect]
     Active Substance: VEDOLIZUMAB
     Indication: Colitis ulcerative
  2. VEDOLIZUMAB [Suspect]
     Active Substance: VEDOLIZUMAB
  3. VEDOLIZUMAB [Suspect]
     Active Substance: VEDOLIZUMAB
  4. MESALAMINE [Concomitant]
     Active Substance: MESALAMINE
  5. BUDESONIDE [Concomitant]
     Active Substance: BUDESONIDE
  6. ENTOCORT [Concomitant]
     Active Substance: BUDESONIDE
  7. Cortiment [Concomitant]

REACTIONS (4)
  - Colitis ulcerative [Not Recovered/Not Resolved]
  - Pregnancy [Recovered/Resolved]
  - Maternal exposure during breast feeding [Unknown]
  - Haemorrhoids [Recovered/Resolved]

NARRATIVE: CASE EVENT DATE: 20241201
